FAERS Safety Report 7777405-4 (Version None)
Quarter: 2011Q3

REPORT INFORMATION
  Report Type: 
  Country: None (occurrence: None)
  Receive Date: 20110926
  Receipt Date: 20110914
  Transmission Date: 20111222
  Serious: Yes (Hospitalization, Other)
  Sender: FDA-Public Use
  Company Number: SE-NOVOPROD-330052

PATIENT

DRUGS (4)
  1. VICTOZA [Suspect]
     Indication: TYPE 2 DIABETES MELLITUS
     Dosage: 0.6 MG, QD
     Route: 058
     Dates: start: 20110201
  2. METFORMIN HCL [Concomitant]
     Indication: TYPE 2 DIABETES MELLITUS
     Dosage: 1 G, TID
     Route: 065
  3. ASPIRIN [Concomitant]
  4. VICTOZA [Suspect]
     Dosage: 1.2 MG, QD
     Route: 058
     Dates: end: 20110601

REACTIONS (3)
  - HYPOGLYCAEMIA [None]
  - LACTIC ACIDOSIS [None]
  - DRUG INTERACTION [None]
